FAERS Safety Report 16352205 (Version 1)
Quarter: 2019Q3

REPORT INFORMATION
  Report Type: Spontaneous
  Country: US (occurrence: US)
  Receive Date: 20190523
  Receipt Date: 20190523
  Transmission Date: 20191004
  Serious: Yes (Life-Threatening)
  Sender: FDA-Public Use
  Company Number: None

PATIENT
  Age: 69 Year
  Sex: Female
  Weight: 73.08 kg

DRUGS (2)
  1. VITAMINS [Concomitant]
     Active Substance: VITAMINS
  2. EQUATE SUGAR FREE FIBER THERAPY SMOOTH TEXTURE ORANGE FLAVOR [Suspect]
     Active Substance: PSYLLIUM HUSK
     Indication: CONSTIPATION
     Dosage: ?          QUANTITY:2 TEASPOON(S);?
     Route: 048
     Dates: end: 20190515

REACTIONS (2)
  - Dyspnoea [None]
  - Incorrect dose administered [None]

NARRATIVE: CASE EVENT DATE: 20190515
